FAERS Safety Report 18737069 (Version 1)
Quarter: 2021Q1

REPORT INFORMATION
  Report Type: Spontaneous
  Country: CA (occurrence: CA)
  Receive Date: 20210113
  Receipt Date: 20210113
  Transmission Date: 20210419
  Serious: Yes (Life-Threatening, Other)
  Sender: FDA-Public Use
  Company Number: CA-TEVA-2020-CA-1864991

PATIENT
  Age: 1 Year
  Sex: Male
  Weight: 10 kg

DRUGS (34)
  1. DIMENHYDRINATE. [Concomitant]
     Active Substance: DIMENHYDRINATE
  2. FLUCONAZOLE. [Concomitant]
     Active Substance: FLUCONAZOLE
  3. HEPARIN CALCIUM [Concomitant]
     Active Substance: HEPARIN CALCIUM
  4. METOCLOPRAMIDE. [Concomitant]
     Active Substance: METOCLOPRAMIDE
  5. LORAZEPAM. [Concomitant]
     Active Substance: LORAZEPAM
  6. METHYLPREDNISOLONE. [Concomitant]
     Active Substance: METHYLPREDNISOLONE
  7. CYTARABINE. [Suspect]
     Active Substance: CYTARABINE
     Route: 037
  8. MITOXANTRONE [Suspect]
     Active Substance: MITOXANTRONE HYDROCHLORIDE
     Indication: ACUTE MYELOID LEUKAEMIA
     Route: 042
  9. ACETAMINOPHEN. [Concomitant]
     Active Substance: ACETAMINOPHEN
  10. METRONIDAZOLE. [Concomitant]
     Active Substance: METRONIDAZOLE
  11. MYCAMINE [Concomitant]
     Active Substance: MICAFUNGIN SODIUM
  12. SULFAMETHOXAZOLE AND TRIMETHOPRIM [Concomitant]
     Active Substance: SULFAMETHOXAZOLE\TRIMETHOPRIM
  13. MORPHINE SULFATE. [Concomitant]
     Active Substance: MORPHINE SULFATE
  14. ZINC. [Concomitant]
     Active Substance: ZINC
  15. CYTARABINE. [Suspect]
     Active Substance: CYTARABINE
     Route: 042
  16. ALLOPURINOL. [Concomitant]
     Active Substance: ALLOPURINOL
  17. CETIRIZINE [Concomitant]
     Active Substance: CETIRIZINE HYDROCHLORIDE
  18. CYTARABINE. [Suspect]
     Active Substance: CYTARABINE
     Route: 037
  19. CYTARABINE. [Suspect]
     Active Substance: CYTARABINE
     Route: 037
  20. CYTARABINE. [Suspect]
     Active Substance: CYTARABINE
     Route: 042
  21. FUROSEMIDE. [Concomitant]
     Active Substance: FUROSEMIDE
  22. MACROGOL 3350 [Concomitant]
     Active Substance: POLYETHYLENE GLYCOL 3350
  23. PREDNISONE. [Concomitant]
     Active Substance: PREDNISONE
  24. CYTARABINE. [Suspect]
     Active Substance: CYTARABINE
     Indication: PRODUCT USED FOR UNKNOWN INDICATION
     Route: 042
  25. ALTEPLASE. [Concomitant]
     Active Substance: ALTEPLASE
  26. CIPROFLOXACIN. [Concomitant]
     Active Substance: CIPROFLOXACIN
  27. ONDANSETRON [Concomitant]
     Active Substance: ONDANSETRON
  28. VANCOMYCIN [Concomitant]
     Active Substance: VANCOMYCIN
  29. ETOPOSIDE. [Suspect]
     Active Substance: ETOPOSIDE
     Indication: ACUTE MYELOID LEUKAEMIA
     Route: 042
  30. CYTARABINE. [Suspect]
     Active Substance: CYTARABINE
     Route: 042
  31. DAUNORUBICIN [Suspect]
     Active Substance: DAUNORUBICIN
     Indication: ACUTE MYELOID LEUKAEMIA
     Route: 042
  32. DIPHENHYDRAMINE. [Concomitant]
     Active Substance: DIPHENHYDRAMINE
  33. MEROPENEM. [Concomitant]
     Active Substance: MEROPENEM
  34. RANITIDINE. [Concomitant]
     Active Substance: RANITIDINE

REACTIONS (4)
  - Febrile neutropenia [Unknown]
  - Bacteraemia [Unknown]
  - Aplastic anaemia [Unknown]
  - Platelet count decreased [Unknown]
